FAERS Safety Report 9259648 (Version 1)
Quarter: 2013Q2

REPORT INFORMATION
  Report Type: Spontaneous
  Country: US (occurrence: US)
  Receive Date: 20130429
  Receipt Date: 20130429
  Transmission Date: 20140414
  Serious: Yes (Other)
  Sender: FDA-Public Use
  Company Number: US-BIOGENIDEC-2013BI036701

PATIENT
  Age: 61 Year
  Sex: Female

DRUGS (4)
  1. AVONEX [Suspect]
     Indication: MULTIPLE SCLEROSIS
     Route: 030
     Dates: start: 20031115, end: 2004
  2. AVONEX [Suspect]
     Indication: MULTIPLE SCLEROSIS
     Route: 030
     Dates: start: 2004, end: 201303
  3. AVONEX [Suspect]
     Indication: MULTIPLE SCLEROSIS
     Route: 030
     Dates: start: 201303
  4. VERSED [Concomitant]
     Indication: SEDATIVE THERAPY
     Dates: start: 2013, end: 2013

REACTIONS (4)
  - Procedural complication [Recovered/Resolved]
  - Procedural hypotension [Recovered/Resolved]
  - Urinary incontinence [Recovered/Resolved]
  - Calculus bladder [Recovered/Resolved]
